FAERS Safety Report 23719133 (Version 1)
Quarter: 2024Q2

REPORT INFORMATION
  Report Type: Spontaneous
  Country: PR (occurrence: PR)
  Receive Date: 20240408
  Receipt Date: 20240408
  Transmission Date: 20240716
  Serious: Yes (Hospitalization, Other)
  Sender: FDA-Public Use
  Company Number: PR-INSUD PHARMA-2403PR02845

PATIENT

DRUGS (3)
  1. PROGESTERONE [Suspect]
     Active Substance: PROGESTERONE
     Indication: Ovulation induction
     Dosage: UNK
     Route: 030
  2. FOLLISTIM [Suspect]
     Active Substance: FOLLITROPIN
     Indication: Ovulation induction
     Dosage: UNK
     Route: 030
  3. MENOPUR [Suspect]
     Active Substance: FOLLITROPIN\LUTEINIZING HORMONE
     Indication: Ovulation induction
     Dosage: UNK
     Route: 030

REACTIONS (12)
  - Ovarian hyperstimulation syndrome [Recovered/Resolved]
  - Ascites [Recovered/Resolved]
  - Abdominal pain [Recovered/Resolved]
  - Abdominal distension [Recovered/Resolved]
  - Nausea [Recovered/Resolved]
  - Vomiting [Recovered/Resolved]
  - Urine output decreased [Recovered/Resolved]
  - Abdominal discomfort [Recovered/Resolved]
  - Tachycardia [Recovered/Resolved]
  - Oliguria [Recovered/Resolved]
  - Leukocytosis [Recovered/Resolved]
  - Hyponatraemia [Recovered/Resolved]
